FAERS Safety Report 8021215-X (Version None)
Quarter: 2011Q4

REPORT INFORMATION
  Report Type: 
  Country: None (occurrence: None)
  Receive Date: 20111230
  Receipt Date: 20111230
  Transmission Date: 20120403
  Serious: Yes (Hospitalization)
  Sender: FDA-Public Use
  Company Number: None

PATIENT
  Sex: Male
  Weight: 94 kg

DRUGS (7)
  1. DOXORUBICIN HCL [Suspect]
     Dosage: 152 MG
  2. ETOPOSIDE [Suspect]
     Dosage: 760 MG
  3. RITUXIMAB (MOAB C2B8 ANTI CD20, CHIMERIC) [Suspect]
     Dosage: 810 MG
  4. CYCLOPHOSPHAMIDE [Suspect]
     Dosage: 2780 MG
  5. VINCRISTINE SULFATE [Suspect]
     Dosage: 3.6 MG
  6. PREDNISONE TAB [Suspect]
     Dosage: 646 MG
  7. METHOTREXATE [Concomitant]

REACTIONS (2)
  - FEBRILE NEUTROPENIA [None]
  - MOUTH ULCERATION [None]
